FAERS Safety Report 16642677 (Version 1)
Quarter: 2019Q3

REPORT INFORMATION
  Report Type: Report from Study
  Country: US (occurrence: US)
  Receive Date: 20190729
  Receipt Date: 20190729
  Transmission Date: 20191004
  Serious: Yes (Hospitalization, Other)
  Sender: FDA-Public Use
  Company Number: US-ROCHE-2358541

PATIENT
  Age: 46 Year
  Sex: Female
  Weight: 59.93 kg

DRUGS (3)
  1. OCREVUS [Suspect]
     Active Substance: OCRELIZUMAB
     Indication: RELAPSING-REMITTING MULTIPLE SCLEROSIS
     Dosage: NO
     Route: 065
     Dates: start: 201707
  2. DOXYCYCLIN [DOXYCYCLINE] [Concomitant]
     Active Substance: DOXYCYCLINE
     Indication: WOUND
     Route: 065
     Dates: start: 201907
  3. TYSABRI [Concomitant]
     Active Substance: NATALIZUMAB

REACTIONS (8)
  - Urinary tract infection [Recovered/Resolved]
  - Contusion [Not Recovered/Not Resolved]
  - Asthenia [Unknown]
  - Wound [Recovered/Resolved]
  - Pruritus [Not Recovered/Not Resolved]
  - Pyrexia [Recovered/Resolved]
  - Thyroid hormones decreased [Recovered/Resolved]
  - Rash [Unknown]

NARRATIVE: CASE EVENT DATE: 201802
